FAERS Safety Report 10052588 (Version 1)
Quarter: 2014Q2

REPORT INFORMATION
  Report Type: Report from Study
  Country: DE (occurrence: DE)
  Receive Date: 20140402
  Receipt Date: 20140402
  Transmission Date: 20141212
  Serious: Yes (Death)
  Sender: FDA-Public Use
  Company Number: DE-SA-2014SA040623

PATIENT
  Age: 68 Year
  Sex: Male
  Weight: 75 kg

DRUGS (8)
  1. JEVTANA [Suspect]
     Indication: PROSTATE CANCER
     Route: 042
     Dates: start: 20130923, end: 20130923
  2. JEVTANA [Suspect]
     Indication: PROSTATE CANCER
     Route: 042
     Dates: start: 20131014, end: 20131014
  3. DEXAMETHASONE [Concomitant]
     Route: 042
     Dates: start: 20130923, end: 20130923
  4. DEXAMETHASONE [Concomitant]
     Route: 042
     Dates: start: 20131014, end: 20131014
  5. RANITIC [Concomitant]
     Route: 042
     Dates: start: 20130923, end: 20130923
  6. RANITIC [Concomitant]
     Route: 042
     Dates: start: 20131014, end: 20131014
  7. TAVEGIL [Concomitant]
     Route: 042
     Dates: start: 20130923, end: 20130923
  8. TAVEGIL [Concomitant]
     Route: 042
     Dates: start: 20131014, end: 20131014

REACTIONS (1)
  - Death [Fatal]
